FAERS Safety Report 25975582 (Version 1)
Quarter: 2025Q4

REPORT INFORMATION
  Report Type: Spontaneous
  Country: US (occurrence: None)
  Receive Date: 20251029
  Receipt Date: 20251029
  Transmission Date: 20260117
  Serious: Yes (Death, Hospitalization)
  Sender: FDA-CTU
  Company Number: None

PATIENT
  Age: 76 Year
  Sex: Male

DRUGS (12)
  1. PIRFENIDONE [Suspect]
     Active Substance: PIRFENIDONE
     Indication: Idiopathic pulmonary fibrosis
     Dosage: FREQUENCY : DAILY;?
     Route: 048
     Dates: start: 20230103, end: 20250911
  2. GABAPENTIN [Concomitant]
     Active Substance: GABAPENTIN
  3. MIRALAX [Concomitant]
     Active Substance: POLYETHYLENE GLYCOL 3350
  4. SENNOSIDES [Concomitant]
     Active Substance: SENNOSIDES
  5. trarnadol [Concomitant]
  6. EZETIMIBE [Concomitant]
     Active Substance: EZETIMIBE
  7. LEVOTHYROXINE [Concomitant]
     Active Substance: LEVOTHYROXINE
  8. EVOLOCUMAB [Concomitant]
     Active Substance: EVOLOCUMAB
  9. TORSEMIDE [Concomitant]
     Active Substance: TORSEMIDE
  10. FLUOXETINE [Concomitant]
     Active Substance: FLUOXETINE HYDROCHLORIDE
  11. METOPROLOL [Concomitant]
     Active Substance: METOPROLOL
  12. PANTOPRAZOLE [Concomitant]
     Active Substance: PANTOPRAZOLE

REACTIONS (8)
  - Metastases to liver [None]
  - Disease complication [None]
  - Pulmonary hypertension [None]
  - Atrial fibrillation [None]
  - Dysphagia [None]
  - Pneumonia aspiration [None]
  - Small cell lung cancer metastatic [None]
  - Terminal state [None]

NARRATIVE: CASE EVENT DATE: 20250904
